FAERS Safety Report 8987901 (Version 1)
Quarter: 2012Q4

REPORT INFORMATION
  Report Type: 
  Country: FR (occurrence: FR)
  Receive Date: 20121227
  Receipt Date: 20121227
  Transmission Date: 20130627
  Serious: Yes (Hospitalization)
  Sender: FDA-Public Use
  Company Number: FR-GLAXOSMITHKLINE-B0854518A

PATIENT
  Age: 65 Year
  Sex: Male

DRUGS (4)
  1. MALARONE [Suspect]
     Indication: MALARIA PROPHYLAXIS
     Dosage: 1TAB Per day
     Route: 048
     Dates: start: 201211, end: 201211
  2. DOGMATIL [Concomitant]
     Indication: ANXIETY
  3. MIANSERINE [Concomitant]
     Indication: DEPRESSION
  4. SERESTA [Concomitant]
     Indication: ANXIETY

REACTIONS (2)
  - Convulsion [Recovered/Resolved]
  - Loss of consciousness [Recovered/Resolved]
